FAERS Safety Report 14804515 (Version 4)
Quarter: 2018Q2

REPORT INFORMATION
  Report Type: Spontaneous
  Country: GB (occurrence: GB)
  Receive Date: 20180425
  Receipt Date: 20180522
  Transmission Date: 20180711
  Serious: Yes (Life-Threatening, Hospitalization, Other)
  Sender: FDA-Public Use
  Company Number: GB-CONCORDIA PHARMACEUTICALS INC.-GSH201704-002170

PATIENT
  Age: 29 Year
  Sex: Female

DRUGS (26)
  1. IPRATROPIUM BROMIDE. [Suspect]
     Active Substance: IPRATROPIUM BROMIDE
     Indication: ASTHMA
     Route: 065
  2. ALBUTEROL. [Suspect]
     Active Substance: ALBUTEROL
     Indication: ASTHMA
     Route: 042
  3. MONTELUKAST [Concomitant]
     Active Substance: MONTELUKAST SODIUM
     Indication: ASTHMA
     Route: 065
  4. SALBUTAMOL [Suspect]
     Active Substance: ALBUTEROL
     Dosage: NEBULISER : IN REPEATED DOSES
     Route: 065
  5. HYDROCORTISONE. [Suspect]
     Active Substance: HYDROCORTISONE
     Indication: ASTHMA
     Route: 042
  6. MAGNESIUM SULFATE. [Suspect]
     Active Substance: MAGNESIUM SULFATE
     Indication: ASTHMA
     Route: 042
  7. SALBUTAMOL [Suspect]
     Active Substance: ALBUTEROL
     Dosage: NEBULISATION
     Route: 065
  8. KETAMINE [Suspect]
     Active Substance: KETAMINE
     Dosage: INCREASED TO 45 MICROG/KG/MIN
     Route: 042
  9. THEOPHYLLINE [Concomitant]
     Active Substance: THEOPHYLLINE ANHYDROUS
     Indication: ASTHMA
     Route: 065
  10. PREDNISOLONE. [Suspect]
     Active Substance: PREDNISOLONE
     Indication: ASTHMA
     Route: 048
  11. EPINEPHRINE(ADRENALINE) [Suspect]
     Active Substance: EPINEPHRINE
     Indication: ASTHMA
     Dosage: DILUTED IN SMALL INCREMENTS
     Route: 065
  12. MAGNESIUM SULFATE. [Suspect]
     Active Substance: MAGNESIUM SULFATE
     Indication: ASTHMA
  13. SEVOFLURANE. [Suspect]
     Active Substance: SEVOFLURANE
     Indication: ASTHMA
  14. SALBUTAMOL [Suspect]
     Active Substance: ALBUTEROL
     Route: 042
  15. IPRATROPIUM BROMIDE. [Suspect]
     Active Substance: IPRATROPIUM BROMIDE
     Dosage: NEBULISATION
     Route: 065
  16. MONTELUKAST [Suspect]
     Active Substance: MONTELUKAST SODIUM
     Indication: ASTHMA
     Route: 048
  17. SALBUTAMOL [Suspect]
     Active Substance: ALBUTEROL
     Indication: ASTHMA
     Route: 042
  18. PREDNISOLONE. [Concomitant]
     Active Substance: PREDNISOLONE
     Indication: ASTHMA
  19. PREDNISOLONE. [Suspect]
     Active Substance: PREDNISOLONE
     Dosage: 30 MG, UNK
     Route: 065
  20. MONTELUKAST [Suspect]
     Active Substance: MONTELUKAST SODIUM
     Route: 065
  21. SEVOFLURANE. [Suspect]
     Active Substance: SEVOFLURANE
     Indication: ASTHMA
     Dosage: DAILY DOSE-8 %
  22. EPINEPHRINE(ADRENALINE) [Suspect]
     Active Substance: EPINEPHRINE
     Dosage: FORM:UNKNOWN
     Route: 065
  23. THEOPHYLLINE [Suspect]
     Active Substance: THEOPHYLLINE ANHYDROUS
     Indication: ASTHMA
     Route: 065
  24. KETAMINE [Suspect]
     Active Substance: KETAMINE
     Indication: ASTHMA
     Route: 042
  25. SALBUTAMOL [Suspect]
     Active Substance: ALBUTEROL
     Indication: ASTHMA
     Dosage: 2 BOLUSES
     Route: 040
  26. SALBUTAMOL [Suspect]
     Active Substance: ALBUTEROL
     Dosage: NEBULISER
     Route: 065

REACTIONS (21)
  - Blood lactic acid increased [Recovering/Resolving]
  - Bronchospasm [Recovering/Resolving]
  - Respiratory acidosis [Recovering/Resolving]
  - Asthma [Recovering/Resolving]
  - Wheezing [Recovering/Resolving]
  - PO2 decreased [Recovering/Resolving]
  - Off label use [Unknown]
  - PCO2 increased [Recovering/Resolving]
  - Drug ineffective [Unknown]
  - Blood pH decreased [Recovering/Resolving]
  - Respiratory rate increased [Recovering/Resolving]
  - Acute respiratory failure [Recovered/Resolved]
  - Blood bicarbonate decreased [Recovering/Resolving]
  - Lung hyperinflation [Recovering/Resolving]
  - Hypercapnia [Recovering/Resolving]
  - Airway peak pressure increased [Recovering/Resolving]
  - Dyspnoea [Recovering/Resolving]
  - Status asthmaticus [Recovered/Resolved]
  - Oxygen saturation decreased [Recovering/Resolving]
  - Asthma [Recovered/Resolved]
  - Cyanosis [Recovering/Resolving]
